FAERS Safety Report 6579035-9 (Version None)
Quarter: 2010Q1

REPORT INFORMATION
  Report Type: 
  Country: None (occurrence: None)
  Receive Date: 20100212
  Receipt Date: 20100128
  Transmission Date: 20100710
  Serious: No
  Sender: FDA-Public Use
  Company Number: US-JNJFOC-20100200834

PATIENT
  Sex: Female
  Weight: 54.43 kg

DRUGS (2)
  1. SANDOZ FENTANYL TRANSDERMAL SYSTEM [Suspect]
     Indication: BACK PAIN
     Route: 062
  2. UNKNOWN MEDICATION [Concomitant]
     Route: 065

REACTIONS (1)
  - WRONG TECHNIQUE IN DRUG USAGE PROCESS [None]
